FAERS Safety Report 8767506 (Version 1)
Quarter: 2012Q4

REPORT INFORMATION
  Report Type: Report from Study
  Country: FR (occurrence: FR)
  Receive Date: 20120904
  Receipt Date: 20120904
  Transmission Date: 20130627
  Serious: Yes (Other)
  Sender: FDA-Public Use
  Company Number: FR-INCYTE CORPORATION-2012IN001645

PATIENT
  Sex: Female

DRUGS (6)
  1. INC424 [Suspect]
     Dosage: 15 mg, bid
     Dates: start: 20111104
  2. INC424 [Suspect]
     Dosage: 10 mg, bid
  3. PLAVIX [Concomitant]
  4. PROPANOLOL [Concomitant]
  5. GABAPENTIN [Concomitant]
  6. TRANSFUSIONS [Concomitant]

REACTIONS (2)
  - Retinal ischaemia [Recovered/Resolved]
  - Anaemia [Not Recovered/Not Resolved]
